FAERS Safety Report 17979682 (Version 2)
Quarter: 2020Q3

REPORT INFORMATION
  Report Type: Spontaneous
  Country: AT (occurrence: AT)
  Receive Date: 20200703
  Receipt Date: 20200903
  Transmission Date: 20201103
  Serious: Yes (Other)
  Sender: FDA-Public Use
  Company Number: AT-JNJFOC-20200636005

PATIENT
  Age: 69 Year
  Sex: Female

DRUGS (6)
  1. RISPERDAL [Suspect]
     Active Substance: RISPERIDONE
     Indication: NEUROPSYCHIATRIC SYMPTOMS
     Route: 065
     Dates: start: 200808
  2. RISPERDAL [Suspect]
     Active Substance: RISPERIDONE
     Route: 065
  3. QUETIAPINE. [Suspect]
     Active Substance: QUETIAPINE
     Indication: NEUROPSYCHIATRIC SYMPTOMS
     Route: 065
     Dates: start: 201601
  4. DIAZEPAM. [Suspect]
     Active Substance: DIAZEPAM
     Indication: NEUROPSYCHIATRIC SYMPTOMS
     Route: 065
     Dates: start: 201601
  5. SERTRALINE [Suspect]
     Active Substance: SERTRALINE HYDROCHLORIDE
     Indication: NEUROPSYCHIATRIC SYMPTOMS
     Route: 065
     Dates: start: 200808
  6. DONEPEZIL. [Suspect]
     Active Substance: DONEPEZIL
     Indication: NEUROPSYCHIATRIC SYMPTOMS
     Route: 065

REACTIONS (4)
  - Emotional disorder [Recovering/Resolving]
  - Sedation [Unknown]
  - Aphasia [Not Recovered/Not Resolved]
  - Immobile [Not Recovered/Not Resolved]
